FAERS Safety Report 24228458 (Version 8)
Quarter: 2024Q4

REPORT INFORMATION
  Report Type: Spontaneous
  Country: US (occurrence: US)
  Receive Date: 20240820
  Receipt Date: 20241028
  Transmission Date: 20250115
  Serious: No
  Sender: PFIZER
  Company Number: US-PFIZER INC-202400237814

PATIENT
  Age: 82 Year
  Sex: Female
  Weight: 63.492 kg

DRUGS (5)
  1. IBRANCE [Suspect]
     Active Substance: PALBOCICLIB
     Indication: Breast cancer metastatic
     Dosage: 125 MG, CYCLIC (EVERY MORNING FOR 3 WEEKS AND 1 WEEK OFF)
     Route: 048
     Dates: start: 20240715, end: 2024
  2. IBRANCE [Suspect]
     Active Substance: PALBOCICLIB
     Dosage: 100 MG, CYCLIC (1 TAB PO DAILY 21 ON, 7 DAYS OFF)
     Route: 048
     Dates: start: 202408
  3. IBRANCE [Suspect]
     Active Substance: PALBOCICLIB
     Dosage: 100 MG, CYCLIC (1 TAB PO DAILY 21 ON, 7 DAYS OFF)
     Route: 048
     Dates: start: 202408
  4. IBRANCE [Suspect]
     Active Substance: PALBOCICLIB
     Dosage: 100 MG, CYCLIC (1 TAB PO DAILY 21 ON, 7 DAYS OFF)
     Route: 048
  5. IBRANCE [Suspect]
     Active Substance: PALBOCICLIB
     Dosage: 75 MG, CYCLIC (TAKE 3 WEEK ON AND 7 DAYS OFF)

REACTIONS (14)
  - Chills [Recovered/Resolved]
  - Dyspnoea [Recovered/Resolved]
  - Weight decreased [Unknown]
  - Dizziness [Unknown]
  - Gingival bleeding [Unknown]
  - Sedation [Unknown]
  - Malaise [Unknown]
  - Palpitations [Not Recovered/Not Resolved]
  - Erythema [Not Recovered/Not Resolved]
  - Pruritus [Not Recovered/Not Resolved]
  - Somnolence [Unknown]
  - Eye pruritus [Not Recovered/Not Resolved]
  - Lacrimation increased [Recovering/Resolving]
  - Vision blurred [Not Recovered/Not Resolved]

NARRATIVE: CASE EVENT DATE: 20240101
